FAERS Safety Report 6363310-7 (Version None)
Quarter: 2009Q3

REPORT INFORMATION
  Report Type: 
  Country: None (occurrence: None)
  Receive Date: 20090919
  Receipt Date: 20090623
  Transmission Date: 20100115
  Serious: No
  Sender: FDA-Public Use
  Company Number: US-ABBOTT-09P-163-0581580-00

PATIENT
  Sex: Male
  Weight: 99.88 kg

DRUGS (2)
  1. HUMIRA [Suspect]
     Indication: PSORIATIC ARTHROPATHY
     Dates: start: 20081101, end: 20081101
  2. HUMIRA [Suspect]
     Indication: PSORIASIS

REACTIONS (4)
  - ASTHENIA [None]
  - BONE PAIN [None]
  - HYPERSENSITIVITY [None]
  - SWELLING FACE [None]
